FAERS Safety Report 8301010-4 (Version None)
Quarter: 2012Q2

REPORT INFORMATION
  Report Type: 
  Country: None (occurrence: None)
  Receive Date: 20120420
  Receipt Date: 20120416
  Transmission Date: 20120825
  Serious: Yes (Hospitalization)
  Sender: FDA-Public Use
  Company Number: US-BAYER-2011-006801

PATIENT
  Age: 30 Year
  Sex: Female
  Weight: 127.89 kg

DRUGS (9)
  1. PREDNISONE TAB [Concomitant]
     Dosage: UNK
     Dates: start: 20060601
  2. ELAVIL [Concomitant]
     Dosage: UNK
     Dates: start: 20060601
  3. MEPRINIMINE [Concomitant]
     Dosage: UNK
     Dates: start: 20060601
  4. AMITRIPTYLINE HCL [Concomitant]
     Dosage: UNK
     Route: 048
     Dates: start: 20041019, end: 20100720
  5. YASMIN [Suspect]
     Indication: PREMENSTRUAL SYNDROME
     Dosage: UNK
     Route: 048
     Dates: start: 20060511, end: 20060601
  6. LEXAPRO [Concomitant]
     Dosage: UNK
     Dates: start: 20060601
  7. DOXYCYCLINE [Concomitant]
     Dosage: UNK
     Dates: start: 20060601
  8. IMIPRAMINE HCL [Concomitant]
     Dosage: UNK
     Dates: start: 20060526
  9. PREVACID [Concomitant]
     Dosage: 30 MG, UNK
     Route: 048
     Dates: start: 20060522

REACTIONS (6)
  - ANXIETY [None]
  - PAIN [None]
  - DEEP VEIN THROMBOSIS [None]
  - EMOTIONAL DISTRESS [None]
  - MENTAL DISORDER [None]
  - PULMONARY EMBOLISM [None]
